FAERS Safety Report 7866469-5 (Version None)
Quarter: 2011Q4

REPORT INFORMATION
  Report Type: 
  Country: None (occurrence: None)
  Receive Date: 20111028
  Receipt Date: 20110622
  Transmission Date: 20120403
  Serious: No
  Sender: FDA-Public Use
  Company Number: US-GLAXOSMITHKLINE-A0932455A

PATIENT
  Age: 84 Year
  Sex: Female

DRUGS (15)
  1. POTASSIUM [Concomitant]
  2. INSULIN [Concomitant]
  3. METOPROLOL TARTRATE [Concomitant]
  4. LOSARTAN POTASSIUM [Concomitant]
  5. THYROID MEDICATION [Concomitant]
  6. SPIRONOLACTONE [Concomitant]
  7. NATURAL FISH OIL [Concomitant]
  8. OXYGEN [Concomitant]
  9. CALCIUM + D [Concomitant]
  10. ASPIRIN [Concomitant]
  11. FUROSEMIDE [Concomitant]
  12. PREDNISONE [Concomitant]
  13. LECITHIN [Concomitant]
  14. ASCORBIC ACID [Concomitant]
  15. ADVAIR DISKUS 100/50 [Suspect]
     Indication: CHRONIC OBSTRUCTIVE PULMONARY DISEASE
     Dosage: 1PUFF TWICE PER DAY
     Route: 055
     Dates: start: 20110621, end: 20110622

REACTIONS (1)
  - BLOOD GLUCOSE INCREASED [None]
